FAERS Safety Report 15103563 (Version 1)
Quarter: 2018Q3

REPORT INFORMATION
  Report Type: Spontaneous
  Country: JP (occurrence: JP)
  Receive Date: 20180703
  Receipt Date: 20180703
  Transmission Date: 20181010
  Serious: Yes (Death, Other)
  Sender: FDA-Public Use
  Company Number: JP-JNJFOC-20180513072

PATIENT
  Age: 73 Year
  Sex: Male
  Weight: 92 kg

DRUGS (9)
  1. GASTER [Concomitant]
     Active Substance: FAMOTIDINE
     Route: 048
     Dates: start: 20130522
  2. TANATRIL [Concomitant]
     Active Substance: IMIDAPRIL
     Indication: CARDIAC FAILURE
     Route: 048
     Dates: start: 20130517
  3. LIVACT [Concomitant]
     Active Substance: AMINO ACIDS
     Route: 048
     Dates: start: 20130522
  4. URSO [Concomitant]
     Active Substance: URSODIOL
     Indication: HEPATIC CIRRHOSIS
     Route: 048
     Dates: start: 20130517
  5. DIART [Concomitant]
     Active Substance: AZOSEMIDE
     Indication: CARDIAC FAILURE
     Route: 048
     Dates: start: 20130517
  6. ALDACTONE A [Concomitant]
     Active Substance: SPIRONOLACTONE
     Indication: CARDIAC FAILURE
     Route: 048
     Dates: start: 20130517
  7. XARELTO [Suspect]
     Active Substance: RIVAROXABAN
     Indication: ATRIAL FIBRILLATION
     Route: 048
     Dates: start: 20130517, end: 20130528
  8. ARTIST [Concomitant]
     Active Substance: CARVEDILOL
     Indication: CARDIAC FAILURE
     Route: 048
     Dates: start: 20130517
  9. MUCOSOLVAN L [Concomitant]
     Active Substance: AMBROXOL HYDROCHLORIDE
     Route: 048
     Dates: start: 20130517

REACTIONS (4)
  - Oesophageal ulcer [Unknown]
  - Haemoptysis [Recovered/Resolved]
  - Gastritis erosive [Unknown]
  - Varices oesophageal [Unknown]

NARRATIVE: CASE EVENT DATE: 20130519
